FAERS Safety Report 4867974-6 (Version None)
Quarter: 2005Q4

REPORT INFORMATION
  Report Type: 
  Country: None (occurrence: None)
  Receive Date: 20051227
  Receipt Date: 20051212
  Transmission Date: 20060501
  Serious: Yes (Hospitalization)
  Sender: FDA-Public Use
  Company Number: JP-JNJFOC-20051201598

PATIENT
  Age: 82 Year
  Sex: Female

DRUGS (13)
  1. RISPERDAL [Suspect]
     Indication: DEMENTIA
     Dosage: 2 MG,  IN 1 DAY, ORAL
     Route: 048
     Dates: start: 20051203, end: 20051203
  2. BENZBROMARONE (BENZBROMARONE) [Concomitant]
  3. ALLOPURINOL [Concomitant]
  4. LOSARTAN POTASSIUM [Concomitant]
  5. DILTIAZEM HYDROCHLORIDE [Concomitant]
  6. FUROSEMIDE [Concomitant]
  7. NIZATIDINE [Concomitant]
  8. ETHYL ICOSAPENTATE (ETHYL ICOSAPENTATE) [Concomitant]
  9. BERAPROST SODIUM (BERAPROST SODIUM) [Concomitant]
  10. ASPIRIN-DIALUMINATE (BUFFERIN) [Concomitant]
  11. SODIUM FERROUS CITRATE (SODIUM FEREDETATE) [Concomitant]
  12. LOXOPROFEN SODIUM (LOXOPROFEN SODIUM) [Concomitant]
  13. REBAMIPIDE (REBAMIPIDE) [Concomitant]

REACTIONS (6)
  - BACK PAIN [None]
  - DELIRIUM [None]
  - INCOHERENT [None]
  - PNEUMONIA [None]
  - RESPIRATORY DEPRESSION [None]
  - SEDATION [None]
